FAERS Safety Report 13523210 (Version 3)
Quarter: 2017Q2

REPORT INFORMATION
  Report Type: Spontaneous
  Country: US (occurrence: US)
  Receive Date: 20170508
  Receipt Date: 20170619
  Transmission Date: 20170830
  Serious: Yes (Death, Hospitalization, Other)
  Sender: FDA-Public Use
  Company Number: US-PFIZER INC-2017192450

PATIENT
  Age: 79 Year
  Sex: Male

DRUGS (1)
  1. XALKORI [Suspect]
     Active Substance: CRIZOTINIB
     Indication: ADENOCARCINOMA
     Dosage: 10 MG, 2X/DAY
     Dates: start: 201703

REACTIONS (2)
  - Neoplasm progression [Fatal]
  - Pulmonary oedema [Unknown]
